FAERS Safety Report 9614819 (Version 1)
Quarter: 2013Q4

REPORT INFORMATION
  Report Type: Spontaneous
  Country: US (occurrence: US)
  Receive Date: 20131011
  Receipt Date: 20131011
  Transmission Date: 20140711
  Serious: No
  Sender: FDA-Public Use
  Company Number: US-PURDUE-USA-2013-0097534

PATIENT
  Age: 41 Year
  Sex: Female

DRUGS (2)
  1. BUTRANS [Suspect]
     Indication: BACK PAIN
     Dosage: 5 MCG, 1/WEEK
     Route: 062
     Dates: start: 20130102, end: 20130106
  2. VICODIN [Concomitant]
     Indication: BREAKTHROUGH PAIN
     Dosage: 1/2 TABLET (750MG), BID
     Route: 048

REACTIONS (3)
  - Nausea [Not Recovered/Not Resolved]
  - Night sweats [Not Recovered/Not Resolved]
  - Migraine [Not Recovered/Not Resolved]
